FAERS Safety Report 5716944-4 (Version None)
Quarter: 2008Q2

REPORT INFORMATION
  Report Type: 
  Country: None (occurrence: None)
  Receive Date: 20080422
  Receipt Date: 20080412
  Transmission Date: 20081010
  Serious: Yes (Hospitalization)
  Sender: FDA-Public Use
  Company Number: DSA_31639_2008

PATIENT
  Age: 73 Year
  Sex: Male

DRUGS (13)
  1. ENALAPRIL MALEATE [Suspect]
     Indication: DRUG USE FOR UNKNOWN INDICATION
     Dosage: 2.5 MG QD ORAL
     Route: 048
     Dates: start: 20080122, end: 20080318
  2. KEISHI-TO [Concomitant]
  3. ITRACONAZOLE [Concomitant]
  4. ASPIRIN [Concomitant]
  5. GASMOTIN [Concomitant]
  6. CLEANAL [Concomitant]
  7. PLETAL [Concomitant]
  8. PANPYOTIN [Concomitant]
  9. GLUNON [Concomitant]
  10. DALACIN-S [Concomitant]
  11. MODACIN [Concomitant]
  12. PHYSISALZ [Concomitant]
  13. HEPARIN NA LOCK [Concomitant]

REACTIONS (3)
  - BLOOD GLUCOSE INCREASED [None]
  - HYPOGLYCAEMIA [None]
  - PNEUMONIA ASPIRATION [None]
